FAERS Safety Report 8458534 (Version 7)
Quarter: 2013Q3

REPORT INFORMATION
  Report Type: Spontaneous
  Country: US (occurrence: US)
  Receive Date: 20120314
  Receipt Date: 20130905
  Transmission Date: 20140515
  Serious: Yes (Hospitalization)
  Sender: FDA-Public Use
  Company Number: US-GLAXOSMITHKLINE-A0965537A

PATIENT
  Age: 38 Year
  Sex: Female

DRUGS (9)
  1. ADVAIR [Suspect]
     Indication: ASTHMA
     Dosage: 1PUFF TWICE PER DAY
     Route: 055
     Dates: start: 201011, end: 201307
  2. VENTOLIN HFA [Suspect]
     Indication: ASTHMA
     Route: 055
     Dates: start: 201209
  3. FLOVENT [Suspect]
     Indication: PRODUCT USED FOR UNKNOWN INDICATION
     Route: 055
     Dates: start: 2011, end: 2011
  4. ALBUTEROL [Suspect]
     Indication: PRODUCT USED FOR UNKNOWN INDICATION
     Dosage: 1PUFF AS REQUIRED
     Route: 055
     Dates: start: 2011, end: 2011
  5. SYMBICORT [Suspect]
     Indication: PRODUCT USED FOR UNKNOWN INDICATION
     Route: 065
  6. RICOLA COUGH DROPS [Suspect]
     Indication: OROPHARYNGEAL PAIN
     Dosage: 3LOZ SINGLE DOSE
     Route: 048
     Dates: start: 20130512
  7. ATROVENT [Concomitant]
  8. SINGULAIR [Concomitant]
  9. UNKNOWN DEVICE [Concomitant]

REACTIONS (32)
  - Aggression [Not Recovered/Not Resolved]
  - Circulatory collapse [Unknown]
  - Aphasia [Unknown]
  - Benign intracranial hypertension [Recovering/Resolving]
  - Pharyngeal operation [Unknown]
  - Nervousness [Recovering/Resolving]
  - Dyskinesia [Unknown]
  - Fatigue [Recovering/Resolving]
  - Asthenia [Recovering/Resolving]
  - Feeling drunk [Unknown]
  - Discomfort [Unknown]
  - Disorientation [Unknown]
  - Dysstasia [Unknown]
  - Aphonia [Unknown]
  - Anxiety [Unknown]
  - Therapeutic response decreased [Unknown]
  - Nervousness [Unknown]
  - Headache [Unknown]
  - Drug ineffective [Unknown]
  - Tremor [Unknown]
  - Headache [Unknown]
  - Drug administration error [Unknown]
  - Drug interaction [Unknown]
  - Oropharyngeal pain [Unknown]
  - Dizziness [Recovered/Resolved]
  - Spinal pain [Recovering/Resolving]
  - Visual impairment [Recovering/Resolving]
  - Headache [Recovering/Resolving]
  - Dyspnoea [Recovering/Resolving]
  - Diarrhoea [Recovering/Resolving]
  - Infection [Recovering/Resolving]
  - Product quality issue [Unknown]
